FAERS Safety Report 9339000 (Version 1)
Quarter: 2013Q2

REPORT INFORMATION
  Report Type: Spontaneous
  Country: US (occurrence: None)
  Receive Date: 20130606
  Receipt Date: 20130606
  Transmission Date: 20140414
  Serious: Yes (Other)
  Sender: FDA-Public Use
  Company Number: None

PATIENT
  Sex: Male
  Weight: 58.51 kg

DRUGS (2)
  1. LEVOTHYROXINE [Suspect]
     Dosage: 1
     Route: 048
     Dates: start: 2007, end: 200911
  2. LEVOTHYROXINE [Suspect]
     Dosage: 1
     Route: 048
     Dates: start: 2007, end: 200911

REACTIONS (1)
  - Drug ineffective [None]
